FAERS Safety Report 15626693 (Version 1)
Quarter: 2018Q4

REPORT INFORMATION
  Report Type: Spontaneous
  Country: FR (occurrence: FR)
  Receive Date: 20181116
  Receipt Date: 20181116
  Transmission Date: 20190205
  Serious: Yes (Hospitalization)
  Sender: FDA-Public Use
  Company Number: FR-PFIZER INC-2018465328

PATIENT
  Age: 84 Year
  Sex: Male

DRUGS (11)
  1. TEMERIT [Suspect]
     Active Substance: NEBIVOLOL
     Indication: MYOCARDIAL ISCHAEMIA
     Dosage: 10 MG, 1X/DAY (TABLET CAN BE CUT INTO 4 PARTS)
     Route: 048
     Dates: end: 20181012
  2. AMLOR [Suspect]
     Active Substance: AMLODIPINE BESYLATE
     Indication: HYPERTENSION
     Dosage: 5 MG, 1X/DAY
     Route: 048
     Dates: end: 20181012
  3. TRAMADOL. [Suspect]
     Active Substance: TRAMADOL
     Dosage: UNK
     Route: 048
     Dates: end: 20181012
  4. PRAVASTATIN SODIUM. [Suspect]
     Active Substance: PRAVASTATIN SODIUM
     Dosage: 40 MG, 1X/DAY
     Route: 048
     Dates: end: 20181011
  5. PRIMPERAN [Suspect]
     Active Substance: METOCLOPRAMIDE HYDROCHLORIDE
     Dosage: UNK
     Route: 048
     Dates: end: 20181012
  6. KARDEGIC [Suspect]
     Active Substance: ASPIRIN DL-LYSINE
     Dosage: 75 MG, 1X/DAY (SACHET DOSE)
     Route: 048
     Dates: end: 20181012
  7. INEXIUM [ESOMEPRAZOLE MAGNESIUM] [Suspect]
     Active Substance: ESOMEPRAZOLE MAGNESIUM
     Dosage: 40 MG, 1X/DAY
     Route: 048
     Dates: end: 20181012
  8. LASILIX [FUROSEMIDE] [Suspect]
     Active Substance: FUROSEMIDE
     Indication: HYPERTENSION
     Dosage: 40 MG, 1X/DAY (TABLET CAN BE CUT)
     Route: 048
     Dates: end: 20181012
  9. REVLIMID [Suspect]
     Active Substance: LENALIDOMIDE
     Indication: PLASMA CELL MYELOMA
     Dosage: 5 MG, CYCLIC
     Route: 048
     Dates: start: 201804, end: 20181012
  10. EUPRESSYL [URAPIDIL] [Suspect]
     Active Substance: URAPIDIL
     Indication: HYPERTENSION
     Dosage: 120 MG, 1X/DAY
     Route: 048
     Dates: end: 20181012
  11. NEOFORDEX [Suspect]
     Active Substance: DEXAMETHASONE ACETATE
     Indication: PLASMA CELL MYELOMA
     Dosage: 20 MG, WEEKLY
     Route: 048
     Dates: start: 201804, end: 20181012

REACTIONS (1)
  - Interstitial lung disease [Recovering/Resolving]

NARRATIVE: CASE EVENT DATE: 201810
